FAERS Safety Report 16144534 (Version 1)
Quarter: 2019Q2

REPORT INFORMATION
  Report Type: Report from Study
  Country: BR (occurrence: BR)
  Receive Date: 20190402
  Receipt Date: 20190402
  Transmission Date: 20190711
  Serious: Yes (Other)
  Sender: FDA-Public Use
  Company Number: PHHY2018BR003433

PATIENT
  Sex: Male
  Weight: 25 kg

DRUGS (5)
  1. OMNITROPE [Suspect]
     Active Substance: SOMATROPIN
     Dosage: 1.3 MG, UNK (AMPOULE)
     Route: 058
     Dates: start: 201801
  2. OMNITROPE [Suspect]
     Active Substance: SOMATROPIN
     Indication: CHONDRODYSTROPHY
     Dosage: 1.1 MG, QD
     Route: 058
     Dates: start: 201501
  3. OMNITROPE [Suspect]
     Active Substance: SOMATROPIN
     Dosage: 1.2 MG, QD
     Route: 058
  4. OMNITROPE [Suspect]
     Active Substance: SOMATROPIN
     Dosage: 1.2 MG, QD (EVERY NIGHT)
     Route: 058
  5. OMNITROPE [Suspect]
     Active Substance: SOMATROPIN
     Indication: GROWTH RETARDATION
     Dosage: 0.13 IU, QD
     Route: 058
     Dates: start: 20141022

REACTIONS (11)
  - Expired device used [Recovered/Resolved]
  - Injection site pain [Recovered/Resolved]
  - Injection site discomfort [Recovered/Resolved]
  - Injection site haemorrhage [Recovered/Resolved]
  - Device malfunction [Unknown]
  - Stress [Unknown]
  - Crying [Unknown]
  - Wrong technique in product usage process [Not Recovered/Not Resolved]
  - Injection site irritation [Unknown]
  - Adenoidal hypertrophy [Not Recovered/Not Resolved]
  - Injection site pain [Unknown]

NARRATIVE: CASE EVENT DATE: 2015
